FAERS Safety Report 18159476 (Version 1)
Quarter: 2020Q3

REPORT INFORMATION
  Report Type: Spontaneous
  Country: US (occurrence: US)
  Receive Date: 20200817
  Receipt Date: 20200817
  Transmission Date: 20201103
  Serious: Yes (Other)
  Sender: FDA-Public Use
  Company Number: US-BAYER-2020-168349

PATIENT
  Age: 31 Year
  Sex: Female

DRUGS (1)
  1. MIRENA [Suspect]
     Active Substance: LEVONORGESTREL
     Indication: CONTRACEPTION
     Dosage: 20 ?G PER DAY CONTINUOUSL
     Route: 015
     Dates: start: 201512, end: 20200528

REACTIONS (8)
  - Post procedural haemorrhage [Recovered/Resolved]
  - Device issue [None]
  - Anovulatory cycle [None]
  - Ovarian cyst [None]
  - Amenorrhoea [Not Recovered/Not Resolved]
  - Uterine leiomyoma [None]
  - Complication of device removal [None]
  - Breast mass [None]

NARRATIVE: CASE EVENT DATE: 2019
